FAERS Safety Report 4752400-8 (Version None)
Quarter: 2005Q3

REPORT INFORMATION
  Report Type: 
  Country: None (occurrence: None)
  Receive Date: 20050823
  Receipt Date: 20050809
  Transmission Date: 20060218
  Serious: Yes (Other)
  Sender: FDA-Public Use
  Company Number: 2005093657

PATIENT
  Age: 42 Year
  Sex: Male

DRUGS (3)
  1. VIAGRA [Suspect]
     Indication: ILL-DEFINED DISORDER
     Dosage: (100 MG, AS NECESSARY), ORAL
     Route: 048
     Dates: start: 20050501, end: 20050510
  2. AMARYL [Concomitant]
  3. MICARDIS [Concomitant]

REACTIONS (8)
  - ASTIGMATISM [None]
  - BLOOD GLUCOSE INCREASED [None]
  - CONDITION AGGRAVATED [None]
  - DIABETES MELLITUS INADEQUATE CONTROL [None]
  - HYPERTENSION [None]
  - RETINAL VEIN OCCLUSION [None]
  - STRESS [None]
  - TREATMENT NONCOMPLIANCE [None]
